FAERS Safety Report 16061663 (Version 1)
Quarter: 2019Q1

REPORT INFORMATION
  Report Type: Spontaneous
  Country: US (occurrence: US)
  Receive Date: 20190312
  Receipt Date: 20190312
  Transmission Date: 20190418
  Serious: No
  Sender: FDA-Public Use
  Company Number: US-BRISTOL-MYERS SQUIBB COMPANY-BMS-2019-022518

PATIENT
  Sex: Female
  Weight: 61.23 kg

DRUGS (1)
  1. ORENCIA [Suspect]
     Active Substance: ABATACEPT
     Indication: RHEUMATOID ARTHRITIS
     Dosage: 125 MILLIGRAM, 125MG/ML
     Route: 058
     Dates: start: 2006

REACTIONS (2)
  - Product storage error [Unknown]
  - Ill-defined disorder [Unknown]
